FAERS Safety Report 18374742 (Version 1)
Quarter: 2020Q4

REPORT INFORMATION
  Report Type: Other
  Country: CN (occurrence: CN)
  Receive Date: 20201013
  Receipt Date: 20201013
  Transmission Date: 20210114
  Serious: Yes (Other)
  Sender: FDA-Public Use
  Company Number: CN-ROCHE-2688485

PATIENT
  Sex: Female

DRUGS (3)
  1. CAPECITABINE. [Suspect]
     Active Substance: CAPECITABINE
     Dosage: TOOK ONCE IN THE MORNING AND EVENING, HALF AN HOUR AFTER MEALS, AND REPEATED EVERY 3 WEEKS ON THE 1S
     Route: 048
  2. LAPATINIB [Suspect]
     Active Substance: LAPATINIB
     Indication: HER2 POSITIVE BREAST CANCER
     Route: 048
  3. CAPECITABINE. [Suspect]
     Active Substance: CAPECITABINE
     Indication: HER2 POSITIVE BREAST CANCER
     Dosage: ONCE IN THE MORNING AND EVENING, TAKING HALF AN HOUR AFTER MEALS. REPEATED EVERY 3 WEEKS ON DAYS 1 T
     Route: 048

REACTIONS (6)
  - Hepatic function abnormal [Unknown]
  - Vomiting [Unknown]
  - Interstitial lung disease [Unknown]
  - Rash [Unknown]
  - Heart injury [Unknown]
  - Nausea [Unknown]
